FAERS Safety Report 5206769-0 (Version None)
Quarter: 2006Q4

REPORT INFORMATION
  Report Type: 
  Country: None (occurrence: None)
  Receive Date: 20061031
  Receipt Date: 20060825
  Transmission Date: 20070319
  Serious: Yes (Other)
  Sender: FDA-Public Use
  Company Number: US200608005997

PATIENT
  Age: 30 Year
  Sex: Female
  Weight: 104.3 kg

DRUGS (2)
  1. SYMBYAX [Suspect]
     Indication: BIPOLAR DISORDER
     Dosage: SEE IMAGE
     Dates: start: 20040801
  2. LAMICTAL [Concomitant]

REACTIONS (1)
  - WEIGHT INCREASED [None]
